FAERS Safety Report 7399978-6 (Version None)
Quarter: 2011Q2

REPORT INFORMATION
  Report Type: 
  Country: None (occurrence: None)
  Receive Date: 20110407
  Receipt Date: 20110328
  Transmission Date: 20111010
  Serious: Yes (Hospitalization)
  Sender: FDA-Public Use
  Company Number: FR-ROCHE-757164

PATIENT
  Sex: Female
  Weight: 67 kg

DRUGS (22)
  1. DOCETAXEL [Suspect]
     Dosage: LAST DOSE PRIOR TO SAE: 7 FEBRUARY 2011, DOSAGE FORM REPORTED AS 75 MG/KG
     Route: 042
     Dates: start: 20101021
  2. ZOPHREN [Concomitant]
     Dates: start: 20101120, end: 20101204
  3. LANSOYL [Concomitant]
     Dosage: TOTAL DAILY DOSE IS REPORTED AS 1
     Dates: start: 20101123
  4. BEVACIZUMAB [Suspect]
     Dosage: LAST DOSE PRIOR TO SAE: 24 MARCH 2011, DOSAGE FORM REPORTED AS 15 MG/KG
     Route: 042
     Dates: start: 20101021
  5. OFLOXACIN [Concomitant]
     Dates: start: 20101120, end: 20101120
  6. LOVENOX [Concomitant]
     Dates: start: 20101122, end: 20101205
  7. FLUISEDAL [Concomitant]
     Dates: start: 20101101, end: 20101120
  8. EUPANTOL [Concomitant]
  9. AMIKLIN [Concomitant]
     Dates: start: 20101122, end: 20101129
  10. AEROSOL NOS [Concomitant]
     Dates: start: 20101128, end: 20101203
  11. NEUPOGEN [Concomitant]
     Dates: start: 20101204
  12. PRIMPERAN TAB [Concomitant]
     Dates: start: 20101110, end: 20101120
  13. ROCEPHIN [Concomitant]
     Dates: start: 20101101, end: 20101120
  14. SPASFON [Concomitant]
     Dates: start: 20101103
  15. FORTUM [Concomitant]
     Dates: start: 20101122, end: 20101129
  16. KALEORID [Concomitant]
     Dates: start: 20101207
  17. PROCORALAN [Concomitant]
     Dates: start: 20110301
  18. SEREVENT [Concomitant]
     Dates: start: 20101101
  19. SOLUPRED [Concomitant]
     Dates: start: 20101201, end: 20101206
  20. SOLUPRED [Concomitant]
     Dates: start: 20101207
  21. RULID [Concomitant]
     Dates: start: 20101120, end: 20101122
  22. MICROLAX [Concomitant]
     Dosage: TOTAL DAILY DOSE REPORTED AS 1
     Dates: start: 20101123, end: 20101123

REACTIONS (2)
  - INTESTINAL OBSTRUCTION [None]
  - PLEURAL EFFUSION [None]
